FAERS Safety Report 6416244-3 (Version None)
Quarter: 2009Q4

REPORT INFORMATION
  Report Type: 
  Country: None (occurrence: None)
  Receive Date: 20091027
  Receipt Date: 20091020
  Transmission Date: 20100525
  Serious: No
  Sender: FDA-Public Use
  Company Number: US-B.I. PHARMACEUTICALS,INC./RIDGEFIELD-2009-BP-11120BP

PATIENT
  Sex: Female
  Weight: 72.12 kg

DRUGS (8)
  1. MIRAPEX [Suspect]
     Indication: RESTLESS LEGS SYNDROME
     Dosage: 1.5 MG
     Route: 048
     Dates: start: 20080601, end: 20090501
  2. TOPAMAX [Concomitant]
  3. LIPITOR [Concomitant]
  4. OMEPRAZOLE [Concomitant]
  5. CEREFOLIN [Concomitant]
  6. MULTI-VITAMINS [Concomitant]
  7. WELLBUTRIN [Concomitant]
  8. AMITRIPTYLINE [Concomitant]

REACTIONS (1)
  - COMPULSIVE SHOPPING [None]
